FAERS Safety Report 20017204 (Version 1)
Quarter: 2021Q4

REPORT INFORMATION
  Report Type: Spontaneous
  Country: GB (occurrence: GB)
  Receive Date: 20211030
  Receipt Date: 20211030
  Transmission Date: 20220304
  Serious: Yes (Hospitalization, Other)
  Sender: FDA-Public Use
  Company Number: None

PATIENT
  Age: 94 Year
  Sex: Female

DRUGS (15)
  1. PRAVASTATIN SODIUM [Suspect]
     Active Substance: PRAVASTATIN SODIUM
     Indication: Product used for unknown indication
  2. AMOXICILLIN [Suspect]
     Active Substance: AMOXICILLIN
     Indication: Product used for unknown indication
     Route: 042
  3. MEROPENEM [Suspect]
     Active Substance: MEROPENEM
     Indication: Product used for unknown indication
     Dosage: 7 DAYS
  4. PIPERACILLIN SODIUM\TAZOBACTAM SODIUM [Suspect]
     Active Substance: PIPERACILLIN SODIUM\TAZOBACTAM SODIUM
     Indication: Product used for unknown indication
     Dosage: 5 DAYS AND THEN FOR A FURTHER 1 DAY A FEW WEEKS LATER
  5. ALLOPURINOL [Concomitant]
     Active Substance: ALLOPURINOL
  6. ASPIRIN [Concomitant]
     Active Substance: ASPIRIN
  7. ATENOLOL [Concomitant]
     Active Substance: ATENOLOL
  8. CIPROFLOXACIN [Concomitant]
     Active Substance: CIPROFLOXACIN
     Dosage: 6 DAYS
  9. DICLOFENAC [Concomitant]
     Active Substance: DICLOFENAC
  10. FOLIC ACID [Concomitant]
     Active Substance: FOLIC ACID
  11. GENTAMICIN [Concomitant]
     Active Substance: GENTAMICIN
     Route: 042
  12. LEVOTHYROXINE [Concomitant]
     Active Substance: LEVOTHYROXINE
  13. LORATADINE [Concomitant]
     Active Substance: LORATADINE
  14. METRONIDAZOLE [Concomitant]
     Active Substance: METRONIDAZOLE
     Dosage: 7 DAYS
     Route: 042
  15. TRAMADOL [Concomitant]
     Active Substance: TRAMADOL

REACTIONS (6)
  - Liver injury [Unknown]
  - Biliary sepsis [Unknown]
  - Liver function test abnormal [Unknown]
  - Pyrexia [Unknown]
  - Abdominal pain [Unknown]
  - Lung consolidation [Unknown]
